FAERS Safety Report 4297433-3 (Version None)
Quarter: 2004Q1

REPORT INFORMATION
  Report Type: 
  Country: None (occurrence: None)
  Receive Date: 20040218
  Receipt Date: 20031007
  Transmission Date: 20041129
  Serious: Yes (Life-Threatening, Hospitalization)
  Sender: FDA-Public Use
  Company Number: FR-ROCHE-348682

PATIENT
  Age: 30 Year
  Sex: Male
  Weight: 55 kg

DRUGS (9)
  1. FUZEON [Suspect]
     Indication: HIV INFECTION
     Route: 058
     Dates: start: 20030915, end: 20031003
  2. FUZEON [Suspect]
     Route: 058
  3. SUSTIVA [Suspect]
     Indication: DRUG USE FOR UNKNOWN INDICATION
     Route: 048
     Dates: start: 20030915, end: 20031003
  4. SUSTIVA [Suspect]
     Route: 048
  5. RITONAVIR [Concomitant]
     Route: 048
     Dates: start: 20020101, end: 20031003
  6. AMPRENAVIR [Concomitant]
     Route: 048
     Dates: start: 20020101, end: 20031003
  7. EPIVIR [Concomitant]
     Route: 048
     Dates: start: 20010101
  8. AGENERASE [Concomitant]
     Route: 048
     Dates: start: 20020101
  9. NORVIR [Concomitant]
     Route: 048
     Dates: start: 20020101

REACTIONS (4)
  - CYTOMEGALOVIRUS INFECTION [None]
  - LUNG INFECTION [None]
  - MYCOBACTERIUM AVIUM COMPLEX INFECTION [None]
  - NEUROPATHY PERIPHERAL [None]
